FAERS Safety Report 5905476-6 (Version None)
Quarter: 2008Q4

REPORT INFORMATION
  Report Type: 
  Country: None (occurrence: None)
  Receive Date: 20081001
  Receipt Date: 20081001
  Transmission Date: 20090506
  Serious: Yes (Hospitalization)
  Sender: FDA-Public Use
  Company Number: None

PATIENT
  Sex: Female
  Weight: 73.2 kg

DRUGS (2)
  1. CARBOPLATIN [Suspect]
     Dosage: 463 MG
  2. TAXOL [Suspect]
     Dosage: 311 MG

REACTIONS (5)
  - BRAIN OEDEMA [None]
  - METASTASES TO CENTRAL NERVOUS SYSTEM [None]
  - PLATELET COUNT DECREASED [None]
  - PNEUMOCEPHALUS [None]
  - POST PROCEDURAL COMPLICATION [None]
